FAERS Safety Report 8273718-0 (Version None)
Quarter: 2012Q2

REPORT INFORMATION
  Report Type: 
  Country: None (occurrence: None)
  Receive Date: 20120411
  Receipt Date: 20120222
  Transmission Date: 20120825
  Serious: No
  Sender: FDA-Public Use
  Company Number: US-TEVA-323819USA

PATIENT
  Sex: Female
  Weight: 68.1 kg

DRUGS (2)
  1. DULOXETINE HYDROCHLORIDE [Concomitant]
     Indication: DEPRESSION
     Dosage: QPM
     Route: 048
  2. NUVIGIL [Suspect]
     Indication: FATIGUE
     Dosage: QAM
     Route: 048
     Dates: start: 20111201

REACTIONS (1)
  - DRUG INEFFECTIVE [None]
